FAERS Safety Report 22230210 (Version 1)
Quarter: 2023Q2

REPORT INFORMATION
  Report Type: Spontaneous
  Country: EG (occurrence: EG)
  Receive Date: 20230419
  Receipt Date: 20230419
  Transmission Date: 20230721
  Serious: Yes (Other)
  Sender: FDA-Public Use
  Company Number: None

PATIENT
  Age: 60 Year
  Sex: Female
  Weight: 75 kg

DRUGS (3)
  1. GEMCITABINE HYDROCHLORIDE [Suspect]
     Active Substance: GEMCITABINE HYDROCHLORIDE
     Indication: Bladder cancer
     Dosage: INTRAVENOUS INFUSION DAY 1,8,15?CYCLE IS REPEATED EVERY 4 WEEKS
     Route: 042
     Dates: start: 20230213
  2. GEMCITABINE HYDROCHLORIDE [Suspect]
     Active Substance: GEMCITABINE HYDROCHLORIDE
     Dosage: INTRAVENOUS INFUSION DAY 1,8,15?CYCLE IS REPEATED EVERY 4 WEEKS
     Route: 042
     Dates: start: 20230220
  3. CARBOPLATIN [Suspect]
     Active Substance: CARBOPLATIN
     Indication: Bladder cancer
     Dosage: INTRAVENOUS INFUSION DAY 1?CYCLE IS REPEATED EVERY 4 WEEKS
     Route: 042
     Dates: start: 20230213

REACTIONS (3)
  - White blood cell count decreased [Recovered/Resolved]
  - Neutropenia [Recovered/Resolved]
  - Anaemia [Recovered/Resolved]
